FAERS Safety Report 19710854 (Version 3)
Quarter: 2021Q3

REPORT INFORMATION
  Report Type: Report from Study
  Country: US (occurrence: US)
  Receive Date: 20210817
  Receipt Date: 20210927
  Transmission Date: 20211014
  Serious: No
  Sender: FDA-Public Use
  Company Number: NVSC2021US178846

PATIENT
  Age: 64 Year
  Sex: Female

DRUGS (2)
  1. KESIMPTA [Suspect]
     Active Substance: OFATUMUMAB
     Dosage: UNK
     Route: 065
     Dates: start: 20210903
  2. KESIMPTA [Suspect]
     Active Substance: OFATUMUMAB
     Indication: MULTIPLE SCLEROSIS
     Dosage: 20 MG, QW, BENEATH THE SKIN, USUALLY VIA INJECTION
     Route: 058
     Dates: start: 20210730, end: 20210730

REACTIONS (7)
  - Vomiting [Recovering/Resolving]
  - Pyrexia [Recovering/Resolving]
  - Pain in extremity [Recovering/Resolving]
  - Pain [Recovered/Resolved]
  - Influenza like illness [Recovering/Resolving]
  - Headache [Recovering/Resolving]
  - Oral herpes [Recovering/Resolving]

NARRATIVE: CASE EVENT DATE: 20210730
